FAERS Safety Report 9478183 (Version 2)
Quarter: 2013Q4

REPORT INFORMATION
  Report Type: Spontaneous
  Country: US (occurrence: US)
  Receive Date: 20130827
  Receipt Date: 20131011
  Transmission Date: 20140711
  Serious: Yes (Other)
  Sender: FDA-Public Use
  Company Number: US-PFIZER INC-2013245179

PATIENT
  Age: 50 Year
  Sex: Female
  Weight: 56.24 kg

DRUGS (8)
  1. LYRICA [Suspect]
     Indication: CYSTITIS INTERSTITIAL
     Dosage: 50 MG, UNK
     Route: 048
     Dates: start: 2011
  2. LYRICA [Suspect]
     Dosage: 100 MG, UNK
     Route: 048
  3. LYRICA [Suspect]
     Dosage: 150 MG, UNK
     Route: 048
     Dates: start: 2012
  4. LYRICA [Suspect]
     Dosage: 200 MG, UNK
     Route: 048
     Dates: start: 2012
  5. LYRICA [Suspect]
     Dosage: 50 MG, UNK
     Route: 048
     Dates: start: 2013
  6. LYRICA [Suspect]
     Dosage: UNK
     Route: 048
  7. FISH OIL [Concomitant]
     Dosage: UNK
  8. VITAMIN D [Concomitant]
     Indication: OSTEOARTHRITIS
     Dosage: UNK

REACTIONS (12)
  - Off label use [Unknown]
  - Cardiac arrest [Unknown]
  - Cardiac disorder [Unknown]
  - Drug ineffective for unapproved indication [Unknown]
  - Personality change [Recovering/Resolving]
  - Depression [Recovering/Resolving]
  - Screaming [Recovering/Resolving]
  - Mood swings [Recovering/Resolving]
  - Depressed mood [Recovering/Resolving]
  - Agitation [Recovering/Resolving]
  - Irritability [Recovering/Resolving]
  - Feeling abnormal [Recovering/Resolving]
